FAERS Safety Report 8083677-1 (Version None)
Quarter: 2012Q1

REPORT INFORMATION
  Report Type: 
  Country: None (occurrence: None)
  Receive Date: 20120127
  Receipt Date: 20110112
  Transmission Date: 20120608
  Serious: No
  Sender: FDA-Public Use
  Company Number: US-ABBOTT-11P-163-0696906-00

PATIENT
  Age: 46 Year
  Sex: Female

DRUGS (12)
  1. ADVAIR HFA [Concomitant]
     Indication: ASTHMA
     Route: 055
  2. ADVAIR HFA [Concomitant]
     Indication: CHRONIC OBSTRUCTIVE PULMONARY DISEASE
  3. ADVAIR DISKUS 100/50 [Concomitant]
     Indication: PRODUCT USED FOR UNKNOWN INDICATION
     Dosage: 100/50 DISKUS
  4. IMURAN [Concomitant]
     Indication: CROHN'S DISEASE
  5. XANAX [Concomitant]
     Indication: ANXIETY
  6. LEXAPRO [Concomitant]
     Indication: POST-TRAUMATIC STRESS DISORDER
  7. ZYRTEC [Concomitant]
     Indication: RHINITIS
  8. PRILOSEC [Concomitant]
     Indication: GASTROOESOPHAGEAL REFLUX DISEASE
  9. LEXAPRO [Concomitant]
     Indication: HOSPITALISATION
  10. HUMIRA [Suspect]
     Indication: CROHN'S DISEASE
     Dates: start: 20101101
  11. ZYRTEC [Concomitant]
     Indication: SINUSITIS
  12. SINGULAIR [Concomitant]
     Indication: HYPERSENSITIVITY

REACTIONS (4)
  - WRONG TECHNIQUE IN DRUG USAGE PROCESS [None]
  - INJECTION SITE HAEMATOMA [None]
  - INJECTION SITE HAEMORRHAGE [None]
  - BRONCHITIS [None]
